FAERS Safety Report 9312792 (Version 1)
Quarter: 2013Q2

REPORT INFORMATION
  Report Type: Spontaneous
  Country: LB (occurrence: LB)
  Receive Date: 20130528
  Receipt Date: 20130528
  Transmission Date: 20140414
  Serious: Yes (Death)
  Sender: FDA-Public Use
  Company Number: LB-009507513-1305LBN014589

PATIENT
  Age: 56 Year
  Sex: Female

DRUGS (4)
  1. JANUVIA [Suspect]
     Indication: DIABETES MELLITUS
     Dosage: 100 DF, QD
     Route: 048
  2. LANTUS [Concomitant]
  3. GLUCOPHAGE [Concomitant]
     Route: 048
  4. GLICLAZIDE [Concomitant]
     Route: 048

REACTIONS (1)
  - Death [Fatal]
